FAERS Safety Report 9659803 (Version 1)
Quarter: 2013Q4

REPORT INFORMATION
  Report Type: Spontaneous
  Country: GB (occurrence: GB)
  Receive Date: 20131031
  Receipt Date: 20131031
  Transmission Date: 20140711
  Serious: Yes (Other)
  Sender: FDA-Public Use
  Company Number: GB-MYLANLABS-2013S1023620

PATIENT
  Age: 37 Year
  Sex: Male

DRUGS (1)
  1. LITHIUM [Suspect]
     Indication: SCHIZOPHRENIA, PARANOID TYPE
     Dosage: 1.2G PER DAY
     Route: 065

REACTIONS (4)
  - Nephrogenic diabetes insipidus [Recovering/Resolving]
  - Thyroiditis [Recovered/Resolved]
  - Hyperparathyroidism primary [Recovering/Resolving]
  - Hypercalcaemia [Recovered/Resolved]
